FAERS Safety Report 17305347 (Version 1)
Quarter: 2020Q1

REPORT INFORMATION
  Report Type: Spontaneous
  Country: US (occurrence: US)
  Receive Date: 20200106
  Receipt Date: 20200106
  Transmission Date: 20200409
  Serious: Yes (Hospitalization)
  Sender: FDA-Public Use
  Company Number: None

PATIENT
  Age: 63 Year
  Sex: Male
  Weight: 61.2 kg

DRUGS (2)
  1. VITAMIN D [Suspect]
     Active Substance: VITAMIN D NOS
     Indication: VITAMIN D DEFICIENCY
     Dosage: ?          OTHER DOSE:50,000;?
     Route: 048
  2. NO DRUG NAME [Concomitant]

REACTIONS (6)
  - Haemoglobin decreased [None]
  - Pyrexia [None]
  - Neutrophil count decreased [None]
  - Platelet count decreased [None]
  - Heart rate increased [None]
  - Respiratory rate increased [None]

NARRATIVE: CASE EVENT DATE: 20191222
